FAERS Safety Report 14709651 (Version 3)
Quarter: 2018Q2

REPORT INFORMATION
  Report Type: Spontaneous
  Country: JP (occurrence: JP)
  Receive Date: 20180403
  Receipt Date: 20180625
  Transmission Date: 20180711
  Serious: Yes (Hospitalization, Disabling, Other)
  Sender: FDA-Public Use
  Company Number: JP-JNJFOC-20180401504

PATIENT
  Age: 67 Year
  Sex: Male
  Weight: 61.3 kg

DRUGS (7)
  1. XARELTO [Suspect]
     Active Substance: RIVAROXABAN
     Indication: ATRIAL FIBRILLATION
     Route: 048
     Dates: start: 20150126, end: 20180312
  2. INSULIN [Concomitant]
     Active Substance: INSULIN NOS
     Route: 065
     Dates: start: 20171219
  3. CRESTOR [Concomitant]
     Active Substance: ROSUVASTATIN CALCIUM
     Route: 065
     Dates: start: 20140625
  4. PARIET [Concomitant]
     Active Substance: RABEPRAZOLE SODIUM
     Route: 065
     Dates: start: 20120309
  5. XARELTO [Suspect]
     Active Substance: RIVAROXABAN
     Indication: CEREBROVASCULAR ACCIDENT PROPHYLAXIS
     Route: 048
     Dates: start: 20150126, end: 20180312
  6. VILDAGLIPTIN [Concomitant]
     Active Substance: VILDAGLIPTIN
     Route: 065
     Dates: start: 20161128
  7. EXCELASE [Concomitant]
     Active Substance: PANCRELIPASE
     Route: 065
     Dates: start: 20170908

REACTIONS (4)
  - Hemianopia homonymous [Unknown]
  - Mitral valve incompetence [Unknown]
  - Embolic stroke [Recovered/Resolved with Sequelae]
  - Protein C deficiency [Unknown]

NARRATIVE: CASE EVENT DATE: 20180312
